FAERS Safety Report 14045466 (Version 1)
Quarter: 2017Q4

REPORT INFORMATION
  Report Type: Spontaneous
  Country: CA (occurrence: CA)
  Receive Date: 20171005
  Receipt Date: 20171005
  Transmission Date: 20180321
  Serious: Yes (Other)
  Sender: FDA-Public Use
  Company Number: CA-CONCORDIA PHARMACEUTICALS INC.-GSH201709-005553

PATIENT
  Sex: Female

DRUGS (7)
  1. ENBREL [Concomitant]
     Active Substance: ETANERCEPT
  2. CIMZIA [Concomitant]
     Active Substance: CERTOLIZUMAB PEGOL
  3. SIMPONI [Concomitant]
     Active Substance: GOLIMUMAB
  4. METHOTREXATE. [Concomitant]
     Active Substance: METHOTREXATE
  5. ORENCIA [Concomitant]
     Active Substance: ABATACEPT
  6. HYDROXYCHLOROQUINE [Suspect]
     Active Substance: HYDROXYCHLOROQUINE
     Indication: PRODUCT USED FOR UNKNOWN INDICATION
     Route: 048
  7. SULFASALAZINE. [Concomitant]
     Active Substance: SULFASALAZINE

REACTIONS (1)
  - Pulmonary toxicity [Unknown]
